FAERS Safety Report 19859826 (Version 2)
Quarter: 2021Q4

REPORT INFORMATION
  Report Type: Spontaneous
  Country: US (occurrence: US)
  Receive Date: 20210921
  Receipt Date: 20211007
  Transmission Date: 20220303
  Serious: No
  Sender: FDA-Public Use
  Company Number: US-BRISTOL-MYERS SQUIBB COMPANY-BMS-2021-093419

PATIENT
  Age: 53 Year
  Sex: Female

DRUGS (2)
  1. KENALOG-40 [Suspect]
     Active Substance: TRIAMCINOLONE ACETONIDE
     Indication: Epicondylitis
     Dosage: 1 MILLILITER, QD
     Route: 065
  2. LIDOCAINE [Concomitant]
     Active Substance: LIDOCAINE
     Indication: Epicondylitis
     Dosage: 1 MILLILITER, QD
     Route: 065

REACTIONS (2)
  - Injection site atrophy [Recovered/Resolved]
  - Injection site discolouration [Recovered/Resolved]
